FAERS Safety Report 12723347 (Version 4)
Quarter: 2019Q1

REPORT INFORMATION
  Report Type: Report from Study
  Country: JP (occurrence: JP)
  Receive Date: 20160908
  Receipt Date: 20190104
  Transmission Date: 20190417
  Serious: Yes (Other)
  Sender: FDA-Public Use
  Company Number: JP-BRISTOL-MYERS SQUIBB COMPANY-BMS-2016-073449

PATIENT
  Age: 74 Year
  Sex: Female
  Weight: 46 kg

DRUGS (1)
  1. NIVOLUMAB [Suspect]
     Active Substance: NIVOLUMAB
     Indication: MALIGNANT MELANOMA
     Dosage: 2 MG/KG, Q3WK
     Route: 041
     Dates: start: 20150911, end: 20160901

REACTIONS (4)
  - Arthritis [Recovering/Resolving]
  - Inappropriate schedule of product administration [Unknown]
  - Arthralgia [Recovering/Resolving]
  - Malignant neoplasm progression [Unknown]

NARRATIVE: CASE EVENT DATE: 20150911
